FAERS Safety Report 22142082 (Version 1)
Quarter: 2023Q1

REPORT INFORMATION
  Report Type: Spontaneous
  Country: US (occurrence: US)
  Receive Date: 20230327
  Receipt Date: 20230327
  Transmission Date: 20230417
  Serious: No
  Sender: FDA-Public Use
  Company Number: US-BIOGEN-2023BI01195365

PATIENT
  Sex: Female

DRUGS (10)
  1. TECFIDERA [Suspect]
     Active Substance: DIMETHYL FUMARATE
     Indication: Multiple sclerosis
     Route: 050
     Dates: start: 20211227, end: 202302
  2. ALBUTEROL [Concomitant]
     Active Substance: ALBUTEROL
     Dosage: 800-800MCG
     Route: 050
  3. CYCLOBENZAPRINE [Concomitant]
     Active Substance: CYCLOBENZAPRINE
     Route: 050
  4. LYRICA [Concomitant]
     Active Substance: PREGABALIN
     Route: 050
  5. OXYBUTYNIN C [Concomitant]
     Route: 050
  6. OXYCODONE HC [Concomitant]
     Route: 050
  7. SERTRALlNE H [Concomitant]
     Route: 050
  8. SIMVASTATIN [Concomitant]
     Active Substance: SIMVASTATIN
     Route: 050
  9. SYNTHROlD [Concomitant]
     Route: 050
  10. TEMAZEPAM [Concomitant]
     Active Substance: TEMAZEPAM
     Route: 050

REACTIONS (2)
  - Paraesthesia [Unknown]
  - Feeling abnormal [Unknown]
